FAERS Safety Report 9708040 (Version 1)
Quarter: 2013Q4

REPORT INFORMATION
  Report Type: Spontaneous
  Country: US (occurrence: None)
  Receive Date: 20131122
  Receipt Date: 20131122
  Transmission Date: 20140711
  Serious: Yes (Hospitalization)
  Sender: FDA-Public Use
  Company Number: None

PATIENT
  Age: 77 Year
  Sex: Female
  Weight: 109.32 kg

DRUGS (1)
  1. RYTHMOL [Suspect]
     Indication: ATRIAL FIBRILLATION
     Dates: start: 20121007, end: 20121007

REACTIONS (5)
  - Bradycardia [None]
  - Oesophageal spasm [None]
  - Heart rate decreased [None]
  - Presyncope [None]
  - Quality of life decreased [None]
